FAERS Safety Report 21572976 (Version 1)
Quarter: 2022Q4

REPORT INFORMATION
  Report Type: Spontaneous
  Country: FR (occurrence: FR)
  Receive Date: 20221109
  Receipt Date: 20221109
  Transmission Date: 20230113
  Serious: Yes (Other)
  Sender: FDA-Public Use
  Company Number: FR-MYLANLABS-2022M1123138

PATIENT
  Sex: Male

DRUGS (3)
  1. IMATINIB [Suspect]
     Active Substance: IMATINIB
     Indication: Chronic myeloid leukaemia
     Dosage: 400 MILLIGRAM (DAILY)
     Route: 065
  2. NICARDIPINE [Concomitant]
     Active Substance: NICARDIPINE
     Indication: Hypertension
     Dosage: UNK
     Route: 065
  3. PROPRANOLOL [Concomitant]
     Active Substance: PROPRANOLOL HYDROCHLORIDE
     Indication: Hypertension
     Dosage: UNK
     Route: 065

REACTIONS (1)
  - Drug ineffective [Unknown]
